FAERS Safety Report 8189933 (Version 3)
Quarter: 2013Q1

REPORT INFORMATION
  Report Type: Report from Study
  Country: FR (occurrence: FR)
  Receive Date: 20111019
  Receipt Date: 20130301
  Transmission Date: 20140127
  Serious: Yes (Hospitalization)
  Sender: FDA-Public Use
  Company Number: FR-MILLENNIUM PHARMACEUTICALS, INC.-2011-04881

PATIENT
  Sex: 0

DRUGS (8)
  1. VELCADE [Suspect]
     Indication: PLASMA CELL MYELOMA
     Dosage: 1.3 MG, UNK
     Route: 065
     Dates: start: 20110906, end: 20111007
  2. REVLIMID [Suspect]
     Indication: PLASMA CELL MYELOMA
     Dosage: 25 MG, UNK
     Route: 065
     Dates: start: 20110906, end: 20111009
  3. DEXAMETHASONE [Suspect]
     Indication: PLASMA CELL MYELOMA
     Dosage: 20 MG, UNK
     Route: 065
     Dates: start: 20110906, end: 20111008
  4. LEDERFOLIN [Concomitant]
     Dosage: 25 MG, UNK
     Route: 048
     Dates: start: 20110906
  5. ZELITREX                           /01269701/ [Concomitant]
     Dosage: 500 MG, UNK
     Route: 048
     Dates: start: 20110906
  6. INNOHEP                            /00889602/ [Concomitant]
     Dosage: UNK
     Dates: start: 20110906
  7. BACTRIM DS [Concomitant]
  8. CLAMOXYL                           /00249601/ [Concomitant]

REACTIONS (4)
  - General physical health deterioration [Not Recovered/Not Resolved]
  - Dyspnoea [Not Recovered/Not Resolved]
  - Orthostatic hypotension [Recovered/Resolved]
  - Lung disorder [Recovered/Resolved]
